FAERS Safety Report 21493996 (Version 2)
Quarter: 2022Q4

REPORT INFORMATION
  Report Type: Report from Study
  Country: IT (occurrence: IT)
  Receive Date: 20221021
  Receipt Date: 20221122
  Transmission Date: 20230113
  Serious: Yes (Death, Other)
  Sender: FDA-Public Use
  Company Number: IT-NOVARTISPH-NVSC2022IT237017

PATIENT
  Age: 75 Year
  Sex: Male
  Weight: 66 kg

DRUGS (2)
  1. TAFINLAR [Suspect]
     Active Substance: DABRAFENIB MESYLATE
     Indication: Papillary thyroid cancer
     Dosage: 50 MG
     Route: 048
     Dates: start: 20220128, end: 20220807
  2. TRAMETINIB [Suspect]
     Active Substance: TRAMETINIB
     Indication: Papillary thyroid cancer
     Dosage: 2 MG
     Route: 048
     Dates: start: 20220128, end: 20220807

REACTIONS (5)
  - Multiple organ dysfunction syndrome [Fatal]
  - Renal impairment [Fatal]
  - Respiratory disorder [Fatal]
  - General physical health deterioration [Fatal]
  - Psychomotor hyperactivity [Fatal]

NARRATIVE: CASE EVENT DATE: 20220807
